FAERS Safety Report 11723477 (Version 3)
Quarter: 2015Q4

REPORT INFORMATION
  Report Type: Spontaneous
  Country: US (occurrence: US)
  Receive Date: 20151111
  Receipt Date: 20151130
  Transmission Date: 20160304
  Serious: No
  Sender: FDA-Public Use
  Company Number: US-ACTELION PHARMACEUTICALS US, INC.-A-US2015-126876

PATIENT
  Age: 78 Year
  Sex: Female

DRUGS (1)
  1. OPSUMIT [Suspect]
     Active Substance: MACITENTAN
     Indication: PULMONARY HYPERTENSION
     Dosage: 10 MG, QD
     Route: 048
     Dates: start: 20151026

REACTIONS (8)
  - Oropharyngeal pain [Unknown]
  - Fatigue [Unknown]
  - Nasal congestion [Unknown]
  - Headache [Unknown]
  - Chills [Unknown]
  - Myalgia [Unknown]
  - Rhinorrhoea [Unknown]
  - Asthenia [Unknown]
